FAERS Safety Report 16567527 (Version 4)
Quarter: 2020Q1

REPORT INFORMATION
  Report Type: Report from Study
  Country: DE (occurrence: DE)
  Receive Date: 20190712
  Receipt Date: 20200124
  Transmission Date: 20200409
  Serious: Yes (Death, Hospitalization, Other)
  Sender: FDA-Public Use
  Company Number: DE-ACTELION-A-CH2019-192764

PATIENT
  Age: 72 Year
  Sex: Male
  Weight: 97 kg

DRUGS (30)
  1. SILDENAFIL. [Concomitant]
     Active Substance: SILDENAFIL
     Indication: PULMONARY ARTERIAL HYPERTENSION
     Dosage: 40 MG, QD
     Dates: start: 201707, end: 20200118
  2. CALCIUM SANDOZ [Concomitant]
     Active Substance: CALCIUM
     Indication: RENAL FAILURE
     Dosage: UNK
     Route: 048
     Dates: start: 2015
  3. UPTRAVI [Suspect]
     Active Substance: SELEXIPAG
     Dosage: 400 MCG, QD
     Route: 048
     Dates: start: 20190501, end: 20200118
  4. DOXAZOSIN [Concomitant]
     Active Substance: DOXAZOSIN MESYLATE
     Indication: BENIGN PROSTATIC HYPERPLASIA
     Dosage: UNK
     Route: 048
     Dates: start: 2011, end: 2019
  5. RENAGEL [Concomitant]
     Active Substance: SEVELAMER HYDROCHLORIDE
     Indication: HYPERPHOSPHATAEMIA
     Dosage: UNK
     Dates: start: 20200114, end: 20200115
  6. IPRAMOL [Concomitant]
     Active Substance: ALBUTEROL SULFATE\IPRATROPIUM BROMIDE
     Dosage: UNK
     Dates: start: 20200116, end: 20200118
  7. ARTERENOL [Concomitant]
     Active Substance: NOREPINEPHRINE HYDROCHLORIDE, (+/-)-
     Indication: HYPOTENSION
     Dosage: UNK
     Route: 042
     Dates: start: 20200116, end: 20200116
  8. UPTRAVI [Suspect]
     Active Substance: SELEXIPAG
     Indication: PULMONARY ARTERIAL HYPERTENSION
     Dosage: 200 MCG, BID
     Route: 048
     Dates: start: 20190415, end: 20190429
  9. L-THYROXIN [Concomitant]
     Active Substance: LEVOTHYROXINE SODIUM
     Indication: THYROIDECTOMY
     Dosage: UNK
     Route: 048
     Dates: start: 2015, end: 20200118
  10. UROREC [Concomitant]
     Active Substance: SILODOSIN
     Indication: BENIGN PROSTATIC HYPERPLASIA
     Dosage: UNK
     Route: 048
     Dates: start: 20200112, end: 20200115
  11. OPSUMIT [Suspect]
     Active Substance: MACITENTAN
     Indication: PULMONARY ARTERIAL HYPERTENSION
     Dosage: 10 MG, QD
     Route: 048
     Dates: start: 201603, end: 20200118
  12. CLEXANE [Concomitant]
     Active Substance: ENOXAPARIN SODIUM
     Indication: PROPHYLAXIS
     Dosage: UNK
     Route: 058
     Dates: start: 20190507, end: 20190531
  13. LISINOPRIL. [Concomitant]
     Active Substance: LISINOPRIL
     Indication: HYPERTENSION
     Dosage: UNK
     Route: 048
     Dates: start: 2009, end: 201902
  14. CEFTRIAXONE. [Concomitant]
     Active Substance: CEFTRIAXONE
     Indication: URINARY TRACT INFECTION
     Dosage: UNK
     Route: 042
     Dates: start: 20200112, end: 20200116
  15. FERRO SANOL [Concomitant]
     Active Substance: FERROUS GLYCINE SULFATE
     Indication: SURGERY
     Dosage: UNK
     Route: 048
     Dates: start: 20190529, end: 20190602
  16. KALIUM [Concomitant]
     Active Substance: POTASSIUM CHLORIDE
     Indication: PROPHYLAXIS
     Dosage: UNK
     Route: 048
     Dates: start: 2014
  17. PANTOPRAZOLE [Concomitant]
     Active Substance: PANTOPRAZOLE
     Indication: PROPHYLAXIS
     Dosage: UNK
     Route: 048
     Dates: start: 2018, end: 20200116
  18. ALLOPURINOL. [Concomitant]
     Active Substance: ALLOPURINOL
     Indication: GOUT
     Dosage: UNK
     Route: 048
     Dates: start: 2014
  19. MAGNESIUM VERLA N [Concomitant]
     Active Substance: MAGNESIUM
     Indication: RENAL FAILURE
     Dosage: UNK
     Route: 048
     Dates: start: 2015
  20. BISOPROLOL [Concomitant]
     Active Substance: BISOPROLOL
     Indication: HYPERTENSION
     Dosage: UNK
     Route: 048
     Dates: start: 2009, end: 20200118
  21. NEXIUM [Concomitant]
     Active Substance: ESOMEPRAZOLE MAGNESIUM
     Indication: PROPHYLAXIS
     Dosage: UNK
     Route: 048
     Dates: start: 20200117, end: 20200118
  22. UPTRAVI [Suspect]
     Active Substance: SELEXIPAG
     Dosage: 800 MCG, QD
     Route: 048
     Dates: start: 20190429, end: 20190501
  23. METAMIZOLE [Concomitant]
     Active Substance: METAMIZOLE
     Indication: PAIN
     Dosage: UNK
     Route: 048
     Dates: start: 2010, end: 20200116
  24. XIPAMIDE [Concomitant]
     Active Substance: XIPAMIDE
     Indication: PULMONARY ARTERIAL HYPERTENSION
     Dosage: UNK UNK, PRN
     Route: 048
     Dates: start: 2010, end: 20200117
  25. DEKRISTOL [Concomitant]
     Active Substance: CHOLECALCIFEROL
     Indication: RENAL FAILURE
     Dosage: UNK
     Route: 048
     Dates: start: 2015, end: 20200113
  26. MARCUMAR [Concomitant]
     Active Substance: PHENPROCOUMON
     Indication: ATRIAL FIBRILLATION
     Dosage: UNK
     Route: 048
     Dates: start: 2010, end: 20200117
  27. UPTRAVI [Suspect]
     Active Substance: SELEXIPAG
     Dosage: 400 MCG, QD
     Route: 048
     Dates: start: 20190228, end: 20190312
  28. CLEXANE [Concomitant]
     Active Substance: ENOXAPARIN SODIUM
     Dosage: UNK
     Route: 058
     Dates: start: 20200116, end: 20200118
  29. TORASEMIDE [Concomitant]
     Active Substance: TORSEMIDE
     Indication: PULMONARY ARTERIAL HYPERTENSION
     Dosage: UNK UNK, PRN
     Route: 048
     Dates: start: 2010, end: 20200117
  30. RENAGEL [Concomitant]
     Active Substance: SEVELAMER HYDROCHLORIDE
     Indication: RENAL FAILURE
     Dosage: UNK
     Dates: start: 201911, end: 201912

REACTIONS (35)
  - Peritoneal dialysis complication [Recovered/Resolved]
  - Hypotension [Recovering/Resolving]
  - Metabolic acidosis [Unknown]
  - Corynebacterium test positive [Not Recovered/Not Resolved]
  - Genital erythema [Not Recovered/Not Resolved]
  - Pancreatitis acute [Recovered/Resolved]
  - Renal failure [Unknown]
  - Anaemia [Recovering/Resolving]
  - Confusional state [Not Recovered/Not Resolved]
  - Blood alkaline phosphatase increased [Unknown]
  - Hypokalaemia [Unknown]
  - Inflammation [Recovered/Resolved]
  - Dialysis related complication [Recovered/Resolved]
  - Urinary tract infection [Not Recovered/Not Resolved]
  - Enterococcus test positive [Not Recovered/Not Resolved]
  - Staphylococcus test positive [Not Recovered/Not Resolved]
  - End stage renal disease [Unknown]
  - Oedema peripheral [Unknown]
  - Fatigue [Unknown]
  - Arthralgia [Recovered/Resolved]
  - Hyperphosphataemia [Not Recovered/Not Resolved]
  - Multiple organ dysfunction syndrome [Fatal]
  - Incarcerated inguinal hernia [Recovered/Resolved]
  - Urosepsis [Not Recovered/Not Resolved]
  - Catheter management [Recovered/Resolved]
  - International normalised ratio increased [Recovered/Resolved]
  - Abdominal pain [Recovered/Resolved]
  - Enterobacter test positive [Not Recovered/Not Resolved]
  - Rash [Unknown]
  - Inguinal hernia repair [Unknown]
  - Renal impairment [Not Recovered/Not Resolved]
  - Peritoneal dialysis [Unknown]
  - Transfusion [Unknown]
  - Genital infection [Not Recovered/Not Resolved]
  - Balanoposthitis [Not Recovered/Not Resolved]

NARRATIVE: CASE EVENT DATE: 20190228
